FAERS Safety Report 4540421-X (Version None)
Quarter: 2004Q4

REPORT INFORMATION
  Report Type: 
  Country: None (occurrence: None)
  Receive Date: 20041228
  Receipt Date: 20041222
  Transmission Date: 20050328
  Serious: Yes (Other)
  Sender: FDA-Public Use
  Company Number: 04-12-1764

PATIENT
  Age: 45 Year
  Sex: Male

DRUGS (5)
  1. CLOZAPINE [Suspect]
     Indication: SCHIZOAFFECTIVE DISORDER
     Dosage: 50-30 QD ORAL
     Route: 048
     Dates: start: 20020301, end: 20041201
  2. TAXOL [Suspect]
     Indication: OESOPHAGEAL CARCINOMA
  3. TAXOL [Suspect]
     Indication: TERMINAL STATE
  4. CARBOPLATIN [Suspect]
     Indication: OESOPHAGEAL CARCINOMA
  5. CARBOPLATIN [Suspect]
     Indication: TERMINAL STATE

REACTIONS (1)
  - AGRANULOCYTOSIS [None]
